FAERS Safety Report 13261298 (Version 2)
Quarter: 2017Q2

REPORT INFORMATION
  Report Type: Spontaneous
  Country: SE (occurrence: SE)
  Receive Date: 20170222
  Receipt Date: 20170419
  Transmission Date: 20170830
  Serious: Yes (Hospitalization)
  Sender: FDA-Public Use
  Company Number: SE-ELI_LILLY_AND_COMPANY-SE201702007232

PATIENT
  Sex: Female
  Weight: 93 kg

DRUGS (12)
  1. METOPROLOL. [Concomitant]
     Active Substance: METOPROLOL
  2. CORDARONE [Concomitant]
     Active Substance: AMIODARONE HYDROCHLORIDE
  3. OXYCONTIN [Concomitant]
     Active Substance: OXYCODONE HYDROCHLORIDE
  4. FORSTEO [Suspect]
     Active Substance: TERIPARATIDE
     Indication: OSTEOPOROSIS
     Dosage: UNK, UNKNOWN
     Route: 058
     Dates: start: 201611
  5. ASACOL [Concomitant]
     Active Substance: MESALAMINE
  6. ELIQUIS [Concomitant]
     Active Substance: APIXABAN
  7. SPIRONOLACTONE. [Concomitant]
     Active Substance: SPIRONOLACTONE
  8. CANDESARTAN. [Concomitant]
     Active Substance: CANDESARTAN
  9. ALVEDON [Concomitant]
     Active Substance: ACETAMINOPHEN
  10. OXYNORM [Concomitant]
     Active Substance: OXYCODONE HYDROCHLORIDE
  11. ESOMEPRAZOL                        /01479301/ [Concomitant]
     Active Substance: ESOMEPRAZOLE
  12. TOLTERODINE [Concomitant]
     Active Substance: TOLTERODINE

REACTIONS (8)
  - Bradycardia [Unknown]
  - Vertigo [Unknown]
  - Hyperkalaemia [Unknown]
  - Hypotension [Unknown]
  - Acute kidney injury [Unknown]
  - Blood creatinine increased [Unknown]
  - Blood sodium decreased [Unknown]
  - Nausea [Not Recovered/Not Resolved]
